FAERS Safety Report 8047414-9 (Version None)
Quarter: 2012Q1

REPORT INFORMATION
  Report Type: 
  Country: None (occurrence: None)
  Receive Date: 20120116
  Receipt Date: 20120106
  Transmission Date: 20120608
  Serious: Yes (Hospitalization)
  Sender: FDA-Public Use
  Company Number: GB-JNJFOC-20120102029

PATIENT
  Age: 75 Year
  Sex: Male
  Weight: 84 kg

DRUGS (7)
  1. BENDROFLUAZIDE [Concomitant]
     Dates: start: 20100127
  2. REMICADE [Suspect]
     Indication: PSORIASIS
     Route: 042
     Dates: start: 20100126, end: 20100318
  3. LANSOPRAZOLE [Concomitant]
     Dates: start: 20100127
  4. ASPIRIN [Concomitant]
     Dates: start: 20100127
  5. MYCOPHENOLATE MOFETIL [Concomitant]
     Dates: start: 20100127
  6. HYDROXYZINE [Concomitant]
     Dates: start: 20100127
  7. ACETAMINOPHEN [Concomitant]

REACTIONS (1)
  - HERPES ZOSTER [None]
